FAERS Safety Report 8396325-8 (Version None)
Quarter: 2012Q2

REPORT INFORMATION
  Report Type: 
  Country: None (occurrence: None)
  Receive Date: 20120530
  Receipt Date: 20120518
  Transmission Date: 20120825
  Serious: Yes (Other)
  Sender: FDA-Public Use
  Company Number: US-ELI_LILLY_AND_COMPANY-US201205007675

PATIENT

DRUGS (1)
  1. FORTEO [Suspect]

REACTIONS (1)
  - HIP ARTHROPLASTY [None]
